FAERS Safety Report 9896219 (Version 1)
Quarter: 2014Q1

REPORT INFORMATION
  Report Type: Spontaneous
  Country: US (occurrence: US)
  Receive Date: 20140213
  Receipt Date: 20140213
  Transmission Date: 20141002
  Serious: No
  Sender: FDA-Public Use
  Company Number: US-BRISTOL-MYERS SQUIBB COMPANY-17418682

PATIENT
  Age: 47 Year
  Sex: Female
  Weight: 74.83 kg

DRUGS (1)
  1. ABATACEPT SUBQ INJECTION 125MG/ML [Suspect]
     Indication: RHEUMATOID ARTHRITIS
     Dosage: LAST INFUSION:22FEB2013?NDC#: 00032188319  ?PRESCRIPTION #: 55533510081

REACTIONS (1)
  - Injection site bruising [Unknown]
